FAERS Safety Report 7180728-3 (Version None)
Quarter: 2010Q4

REPORT INFORMATION
  Report Type: 
  Country: None (occurrence: None)
  Receive Date: 20101221
  Receipt Date: 20101213
  Transmission Date: 20110411
  Serious: Yes (Disabling)
  Sender: FDA-Public Use
  Company Number: US-ABBOTT-10P-163-0691801-00

PATIENT
  Age: 65 Year
  Sex: Male

DRUGS (21)
  1. HUMIRA [Suspect]
     Indication: PSORIATIC ARTHROPATHY
     Dates: start: 20081201
  2. ALBUTEROL [Concomitant]
     Indication: LUNG DISORDER
     Dosage: PRN
  3. BRIMONIDINE EYE DROPS [Concomitant]
     Indication: OPTIC NERVE DISORDER
     Dosage: 1 DROP; 1 IN 1 DAY EACH EYE
  4. BRIMONIDINE EYE DROPS [Concomitant]
     Indication: GLAUCOMA
  5. BRIMONIDINE EYE DROPS [Concomitant]
     Indication: PROPHYLAXIS
  6. CARBIDOPA AND LEVODOPA [Concomitant]
     Indication: PARKINSON'S DISEASE
  7. LASIX [Concomitant]
     Indication: BLOOD PRESSURE
  8. SYNTHROID [Concomitant]
     Indication: HYPOTHYROIDISM
  9. LOSARTAN [Concomitant]
     Indication: BLOOD PRESSURE
  10. METFORMIN HCL [Concomitant]
     Indication: TYPE 2 DIABETES MELLITUS
  11. METOPROLOL TARTRATE [Concomitant]
     Indication: BLOOD PRESSURE
  12. MOMETASONE FUROATE [Concomitant]
     Indication: CHRONIC OBSTRUCTIVE PULMONARY DISEASE
  13. NIACIN [Concomitant]
     Indication: BLOOD CHOLESTEROL
  14. PANTOPRAZOLE [Concomitant]
     Indication: GASTROOESOPHAGEAL REFLUX DISEASE
  15. POTASSIUM CHLORIDE [Concomitant]
     Indication: PRODUCT USED FOR UNKNOWN INDICATION
  16. SIMVASTATIN [Concomitant]
     Indication: BLOOD CHOLESTEROL
  17. ASPIRIN [Concomitant]
     Indication: PROPHYLAXIS
  18. ASPIRIN [Concomitant]
     Indication: ANTICOAGULANT THERAPY
  19. VITAMIN B-12 [Concomitant]
     Indication: VITAMIN SUPPLEMENTATION
  20. VITAMIN D [Concomitant]
     Indication: VITAMIN SUPPLEMENTATION
  21. OXYGEN [Concomitant]
     Indication: CHRONIC OBSTRUCTIVE PULMONARY DISEASE
     Dosage: 4 LITERS AND BIPAP MACHINE 20/14 AT NIGHT

REACTIONS (3)
  - CATARACT [None]
  - VISUAL IMPAIRMENT [None]
  - VITAMIN D DECREASED [None]
